APPROVED DRUG PRODUCT: ACETYLCYSTEINE
Active Ingredient: ACETYLCYSTEINE
Strength: 20%
Dosage Form/Route: SOLUTION;INHALATION, ORAL
Application: A205643 | Product #001
Applicant: EXELA PHARMA SCIENCES LLC
Approved: Nov 1, 2023 | RLD: No | RS: No | Type: DISCN